FAERS Safety Report 6234209-1 (Version None)
Quarter: 2009Q2

REPORT INFORMATION
  Report Type: 
  Country: None (occurrence: None)
  Receive Date: 20090618
  Receipt Date: 20090604
  Transmission Date: 20091009
  Serious: Yes (Hospitalization)
  Sender: FDA-Public Use
  Company Number: AU-NOVOPROD-286657

PATIENT
  Age: 60 Year
  Sex: Female
  Weight: 78 kg

DRUGS (9)
  1. NOVORAPID PENFILL [Suspect]
     Indication: TYPE 1 DIABETES MELLITUS
     Dosage: 60-70  U, 3 TIMES A DAY
  2. PROTAPHANE PENFILL [Suspect]
     Indication: TYPE 1 DIABETES MELLITUS
     Dosage: 60 U AT NIGHT, QD
     Dates: start: 20011213
  3. ATACAND [Concomitant]
     Indication: DRUG USE FOR UNKNOWN INDICATION
     Dosage: 8 MG, QD
     Route: 048
     Dates: start: 20050225
  4. CARBAMAZEPINE [Concomitant]
     Indication: NEUROPATHY PERIPHERAL
     Dosage: 100 MG, QD
     Route: 048
     Dates: start: 20080201
  5. EZETROL [Concomitant]
     Indication: LIPIDS INCREASED
     Dosage: 10 MG, QD
     Route: 048
     Dates: start: 20050802
  6. ISOVIR [Concomitant]
     Indication: TRANSIENT ISCHAEMIC ATTACK
     Dosage: 75 MG, QD
     Route: 048
     Dates: start: 20050802
  7. ROCALTROL [Concomitant]
     Indication: OSTEOPOROSIS
     Dosage: .25 MG, QD
     Route: 048
     Dates: start: 20060904
  8. LIPITOR [Concomitant]
     Indication: LIPIDS INCREASED
     Dosage: 40 MG, QD
     Route: 048
     Dates: start: 20010818
  9. LASIX [Concomitant]
     Indication: DRUG USE FOR UNKNOWN INDICATION
     Dosage: 40 MG, QD
     Route: 048
     Dates: start: 20010928

REACTIONS (1)
  - CEREBROVASCULAR ACCIDENT [None]
